FAERS Safety Report 7068544-4 (Version None)
Quarter: 2010Q4

REPORT INFORMATION
  Report Type: 
  Country: None (occurrence: None)
  Receive Date: 20101028
  Receipt Date: 20101018
  Transmission Date: 20110411
  Serious: Yes (Other)
  Sender: FDA-Public Use
  Company Number: US-SANOFI-AVENTIS-2010SA058150

PATIENT
  Age: 73 Year
  Sex: Female
  Weight: 93 kg

DRUGS (11)
  1. LANTUS [Suspect]
     Indication: TYPE 2 DIABETES MELLITUS
     Dosage: DOSE:65 UNIT(S)
     Route: 058
     Dates: start: 20080101
  2. SOLOSTAR [Suspect]
     Indication: TYPE 2 DIABETES MELLITUS
     Dates: start: 20080101
  3. HUMALOG [Concomitant]
     Dosage: 24 UNITS AT BREAKFAST, 26 UNITS AT LUNCH, 28 UNITS AT DINNER
  4. ZETIA [Concomitant]
  5. LIPITOR [Concomitant]
  6. PLAVIX [Concomitant]
     Indication: STENT PLACEMENT
  7. ASPIRIN [Concomitant]
     Indication: PROPHYLAXIS
  8. CARTIA /AUS/ [Concomitant]
  9. LISINOPRIL [Concomitant]
     Indication: BLOOD PRESSURE
  10. VITAMIN K TAB [Concomitant]
     Dosage: DOSE:2000 UNIT(S)
  11. ALL OTHER THERAPEUTIC PRODUCTS [Concomitant]

REACTIONS (4)
  - BLOOD GLUCOSE FLUCTUATION [None]
  - BLOOD GLUCOSE INCREASED [None]
  - CORONARY ARTERY OCCLUSION [None]
  - DRUG DOSE OMISSION [None]
